FAERS Safety Report 10786406 (Version 1)
Quarter: 2015Q1

REPORT INFORMATION
  Report Type: Spontaneous
  Country: US (occurrence: US)
  Receive Date: 20150211
  Receipt Date: 20150211
  Transmission Date: 20150721
  Serious: No
  Sender: FDA-Public Use
  Company Number: US-009507513-1502USA004270

PATIENT
  Sex: Female

DRUGS (2)
  1. BENADRYL [Concomitant]
     Active Substance: DIPHENHYDRAMINE HYDROCHLORIDE
  2. EMEND [Suspect]
     Active Substance: APREPITANT

REACTIONS (2)
  - Gastrointestinal haemorrhage [Recovering/Resolving]
  - Constipation [Recovering/Resolving]
